FAERS Safety Report 21484649 (Version 1)
Quarter: 2022Q4

REPORT INFORMATION
  Report Type: Spontaneous
  Country: US (occurrence: US)
  Receive Date: 20221020
  Receipt Date: 20221020
  Transmission Date: 20230113
  Serious: Yes (Hospitalization)
  Sender: FDA-Public Use
  Company Number: US-MYLANLABS-2022M1115744

PATIENT
  Age: 58 Year
  Sex: Male

DRUGS (4)
  1. OXALIPLATIN [Suspect]
     Active Substance: OXALIPLATIN
     Indication: Colon cancer stage III
     Dosage: UNK
     Route: 065
  2. LEUCOVORIN [Suspect]
     Active Substance: LEUCOVORIN
     Indication: Colon cancer stage III
     Dosage: UNK
     Route: 065
  3. FLUOROURACIL [Suspect]
     Active Substance: FLUOROURACIL
     Indication: Colon cancer stage III
     Dosage: UNK
     Route: 065
  4. CAPECITABINE [Suspect]
     Active Substance: CAPECITABINE
     Indication: Colon cancer stage III
     Dosage: UNK
     Route: 065

REACTIONS (2)
  - Arteriospasm coronary [Recovered/Resolved]
  - Electrocardiogram ST segment elevation [Recovered/Resolved]
